FAERS Safety Report 5098432-4 (Version None)
Quarter: 2006Q3

REPORT INFORMATION
  Report Type: 
  Country: None (occurrence: None)
  Receive Date: 20060906
  Receipt Date: 20060111
  Transmission Date: 20061208
  Serious: No
  Sender: FDA-Public Use
  Company Number: US-GLAXOSMITHKLINE-A0589532A

PATIENT
  Age: 44 Year
  Sex: Male
  Weight: 90.9 kg

DRUGS (1)
  1. REQUIP [Suspect]
     Indication: RESTLESS LEGS SYNDROME
     Dosage: .5MG AS REQUIRED
     Route: 048
     Dates: start: 20051001

REACTIONS (2)
  - PRIAPISM [None]
  - SEDATION [None]
